FAERS Safety Report 4347364-5 (Version None)
Quarter: 2004Q2

REPORT INFORMATION
  Report Type: 
  Country: None (occurrence: None)
  Receive Date: 20040422
  Receipt Date: 20040407
  Transmission Date: 20050107
  Serious: Yes (Other)
  Sender: FDA-Public Use
  Company Number: JP_040202678

PATIENT
  Age: 63 Year
  Sex: Female

DRUGS (4)
  1. GEMZAR [Suspect]
     Indication: PANCREATIC CARCINOMA
     Dosage: 800 MG/M2 OTHER
     Dates: start: 20040101, end: 20040206
  2. INSULIN [Concomitant]
  3. UNSPECIFIED [Concomitant]
  4. UNSPECIFIED [Concomitant]

REACTIONS (5)
  - ANGIOPATHY [None]
  - BLOOD CREATININE INCREASED [None]
  - METASTASES TO CENTRAL NERVOUS SYSTEM [None]
  - PARESIS [None]
  - SPINAL CORD COMPRESSION [None]
